FAERS Safety Report 4740952-3 (Version None)
Quarter: 2005Q3

REPORT INFORMATION
  Report Type: 
  Country: None (occurrence: None)
  Receive Date: 20050810
  Receipt Date: 20030204
  Transmission Date: 20060218
  Serious: Yes (Life-Threatening, Hospitalization, Disabling)
  Sender: FDA-Public Use
  Company Number: DE-ROCHE-343878

PATIENT
  Age: 46 Year
  Sex: Male
  Weight: 65 kg

DRUGS (6)
  1. VALCYTE [Suspect]
     Route: 048
     Dates: start: 20021020, end: 20030120
  2. VALCYTE [Suspect]
     Route: 048
     Dates: start: 20030211
  3. CYCLOSPORINE [Concomitant]
     Indication: RENAL TRANSPLANT
     Route: 048
  4. URBASON [Concomitant]
     Indication: RENAL TRANSPLANT
     Route: 048
  5. NORVASC [Concomitant]
  6. CONCOR [Concomitant]

REACTIONS (3)
  - LEUKOPENIA [None]
  - NEPHRECTOMY [None]
  - PNEUMONIA [None]
